FAERS Safety Report 10034733 (Version 2)
Quarter: 2014Q2

REPORT INFORMATION
  Report Type: Spontaneous
  Country: FR (occurrence: FR)
  Receive Date: 20140325
  Receipt Date: 20140502
  Transmission Date: 20141212
  Serious: Yes (Death, Hospitalization)
  Sender: FDA-Public Use
  Company Number: FR-SA-2014SA032692

PATIENT
  Age: 74 Year
  Sex: Male

DRUGS (11)
  1. ZALTRAP [Suspect]
     Indication: COLORECTAL CANCER
     Route: 042
     Dates: start: 20140120, end: 20140120
  2. ZALTRAP [Suspect]
     Indication: COLORECTAL CANCER
     Route: 042
     Dates: start: 20140217, end: 20140217
  3. FOLINIC ACID [Concomitant]
     Indication: COLORECTAL CANCER
     Route: 042
  4. IRINOTECAN [Concomitant]
     Indication: COLORECTAL CANCER
     Route: 042
  5. FLUOROURACIL [Concomitant]
     Indication: COLORECTAL CANCER
     Route: 042
  6. SOLUTIONS FOR PARENTERAL NUTRITION [Concomitant]
     Dates: start: 201403, end: 201403
  7. MULTIVITAMINS [Concomitant]
     Dates: start: 201403, end: 201403
  8. ALL OTHER THERAPEUTIC PRODUCTS [Concomitant]
     Dates: start: 201403, end: 201403
  9. ZOPHREN [Concomitant]
     Dates: start: 201403, end: 201403
  10. PRIMPERAN [Concomitant]
     Dates: start: 201403, end: 201403
  11. PERFALGAN [Concomitant]
     Dates: start: 201403, end: 201403

REACTIONS (5)
  - Pneumonia [Fatal]
  - Asthenia [Recovering/Resolving]
  - Dyspepsia [Recovering/Resolving]
  - Vomiting [Recovering/Resolving]
  - Intestinal obstruction [Recovering/Resolving]
